FAERS Safety Report 8505330-X (Version None)
Quarter: 2012Q3

REPORT INFORMATION
  Report Type: 
  Country: None (occurrence: None)
  Receive Date: 20120712
  Receipt Date: 20120709
  Transmission Date: 20120928
  Serious: Yes (Other)
  Sender: FDA-Public Use
  Company Number: US-PFIZER INC-2012164162

PATIENT

DRUGS (1)
  1. LYRICA [Suspect]
     Dosage: 600 MG

REACTIONS (2)
  - ARTHROPATHY [None]
  - LETHARGY [None]
